FAERS Safety Report 8606551-8 (Version None)
Quarter: 2012Q3

REPORT INFORMATION
  Report Type: 
  Country: None (occurrence: None)
  Receive Date: 20120820
  Receipt Date: 20090928
  Transmission Date: 20120928
  Serious: Yes (Other)
  Sender: FDA-Public Use
  Company Number: CO-PFIZER INC-2012202210

PATIENT
  Age: 51 Year
  Sex: Female

DRUGS (4)
  1. LIPITOR [Suspect]
     Indication: DYSLIPIDAEMIA
     Dosage: 10 MG, 1X/DAY
  2. OLMESARTAN MEDOXOMIL AND HYDROCHLOROTHIZIDE [Suspect]
     Indication: HYPERTENSION
     Dosage: 20/12.5 MG, 2X/DAY
  3. METFORMIN [Concomitant]
     Dosage: 850 MG, 2X/DAY
  4. GLIBENCLAMIDE [Concomitant]
     Dosage: 5 MG, 3X/DAY

REACTIONS (2)
  - PLEURITIC PAIN [None]
  - COUGH [None]
